FAERS Safety Report 7788131-X (Version None)
Quarter: 2011Q3

REPORT INFORMATION
  Report Type: 
  Country: None (occurrence: None)
  Receive Date: 20110930
  Receipt Date: 20110207
  Transmission Date: 20111222
  Serious: Yes (Hospitalization, Other)
  Sender: FDA-Public Use
  Company Number: US-BAYER-201025745NA

PATIENT
  Age: 18 Year
  Sex: Female
  Weight: 93 kg

DRUGS (6)
  1. YAZ [Suspect]
     Indication: PRODUCT USED FOR UNKNOWN INDICATION
     Route: 048
     Dates: start: 20070101, end: 20070501
  2. YAZ [Suspect]
     Indication: PREMENSTRUAL SYNDROME
     Dosage: UNK
     Dates: start: 20000101, end: 20100101
  3. ZOMIG [Concomitant]
     Dosage: UNK
     Dates: start: 20000101
  4. TOPAMAX [Concomitant]
     Dosage: UNK
     Dates: start: 20000101
  5. YAZ [Suspect]
     Dosage: UNK
     Dates: start: 20050101, end: 20070101
  6. YASMIN [Suspect]
     Indication: PRODUCT USED FOR UNKNOWN INDICATION
     Route: 048
     Dates: start: 20070101, end: 20070501

REACTIONS (3)
  - CHOLECYSTECTOMY [None]
  - PERITONEAL ADHESIONS [None]
  - INJURY [None]
